FAERS Safety Report 14938087 (Version 2)
Quarter: 2020Q1

REPORT INFORMATION
  Report Type: Spontaneous
  Country: NL (occurrence: NL)
  Receive Date: 20180525
  Receipt Date: 20200121
  Transmission Date: 20200409
  Serious: Yes (Life-Threatening, Hospitalization, Other)
  Sender: FDA-Public Use
  Company Number: NL-MYLANLABS-2018M1033388

PATIENT
  Sex: Male
  Weight: 3 kg

DRUGS (1)
  1. SERTRALINE [Suspect]
     Active Substance: SERTRALINE HYDROCHLORIDE
     Indication: DEPRESSION
     Dosage: 100 MILLIGRAM, QD (1 DAAGS)
     Route: 064

REACTIONS (2)
  - Neonatal respiratory arrest [Recovered/Resolved]
  - Foetal exposure during pregnancy [Recovered/Resolved]
